FAERS Safety Report 6749178-5 (Version None)
Quarter: 2010Q2

REPORT INFORMATION
  Report Type: 
  Country: None (occurrence: None)
  Receive Date: 20100601
  Receipt Date: 20100520
  Transmission Date: 20101027
  Serious: Yes (Other)
  Sender: FDA-Public Use
  Company Number: US-BAYER-201021860NA

PATIENT
  Age: 69 Year
  Sex: Female

DRUGS (3)
  1. BETASERON [Suspect]
     Indication: DRUG USE FOR UNKNOWN INDICATION
  2. UNKNOWN DRUG [Concomitant]
     Indication: THYROID DISORDER
  3. UNKNOWN DRUG [Concomitant]
     Indication: ARTHRITIS

REACTIONS (1)
  - LUNG NEOPLASM MALIGNANT [None]
